FAERS Safety Report 7228180-3 (Version None)
Quarter: 2011Q1

REPORT INFORMATION
  Report Type: 
  Country: None (occurrence: None)
  Receive Date: 20110114
  Receipt Date: 20110106
  Transmission Date: 20110831
  Serious: Yes (Other)
  Sender: FDA-Public Use
  Company Number: US-PFIZER INC-2011001931

PATIENT
  Sex: Male
  Weight: 77 kg

DRUGS (3)
  1. ATIVAN [Concomitant]
     Indication: STRESS
     Dosage: 0.5 MG, 2X/DAY
  2. CHANTIX [Suspect]
     Indication: SMOKING CESSATION THERAPY
     Dosage: 0.5 MG, 2X/DAY
     Dates: start: 20110101
  3. NORCO [Concomitant]
     Indication: FIBROMYALGIA
     Dosage: 5/325 MG

REACTIONS (4)
  - THROAT TIGHTNESS [None]
  - LUNG NEOPLASM [None]
  - PHARYNGEAL OEDEMA [None]
  - CHRONIC OBSTRUCTIVE PULMONARY DISEASE [None]
